FAERS Safety Report 4708583-9 (Version None)
Quarter: 2005Q3

REPORT INFORMATION
  Report Type: 
  Country: None (occurrence: None)
  Receive Date: 20050707
  Receipt Date: 20050628
  Transmission Date: 20060218
  Serious: Yes (Other)
  Sender: FDA-Public Use
  Company Number: US-BRISTOL-MYERS SQUIBB COMPANY-13017256

PATIENT
  Sex: Male

DRUGS (1)
  1. KENALOG-40 [Suspect]

REACTIONS (1)
  - INFECTION [None]
